FAERS Safety Report 24880137 (Version 4)
Quarter: 2025Q1

REPORT INFORMATION
  Report Type: Spontaneous
  Country: US (occurrence: US)
  Receive Date: 20250123
  Receipt Date: 20250227
  Transmission Date: 20250409
  Serious: No
  Sender: PFIZER
  Company Number: US-PFIZER INC-202500008011

PATIENT
  Age: 10 Year
  Sex: Female
  Weight: 38.549 kg

DRUGS (2)
  1. GENOTROPIN [Suspect]
     Active Substance: SOMATROPIN
     Indication: Short stature
     Dosage: 1.6 MG, 1X/DAY
     Route: 058
  2. GENOTROPIN [Suspect]
     Active Substance: SOMATROPIN
     Indication: Growth hormone deficiency

REACTIONS (4)
  - Alanine aminotransferase increased [Unknown]
  - Glycosylated haemoglobin increased [Unknown]
  - Protein total abnormal [Unknown]
  - Device issue [Unknown]
